FAERS Safety Report 13027549 (Version 1)
Quarter: 2016Q4

REPORT INFORMATION
  Report Type: Spontaneous
  Country: GR (occurrence: GR)
  Receive Date: 20161214
  Receipt Date: 20161214
  Transmission Date: 20170207
  Serious: Yes (Death, Other)
  Sender: FDA-Public Use
  Company Number: GR-BAYER-2016-235048

PATIENT
  Age: 48 Year
  Sex: Male

DRUGS (3)
  1. LEPIRUDIN [Suspect]
     Active Substance: LEPIRUDIN
     Indication: CARDIAC OPERATION
     Dosage: UNK
     Route: 042
  2. LEPIRUDIN [Suspect]
     Active Substance: LEPIRUDIN
     Indication: CARDIAC OPERATION
     Dosage: 0.2 MG/KG, UNK
     Route: 040
  3. HEPARIN [Suspect]
     Active Substance: HEPARIN SODIUM

REACTIONS (12)
  - Respiratory failure [None]
  - Multiple organ dysfunction syndrome [Fatal]
  - Renal failure [None]
  - Drug ineffective [None]
  - Deep vein thrombosis [None]
  - Peripheral artery thrombosis [None]
  - Haemodynamic instability [None]
  - Peripheral artery occlusion [None]
  - Sepsis [None]
  - Wound decomposition [None]
  - Colitis ischaemic [None]
  - Pulmonary embolism [None]
